FAERS Safety Report 19528881 (Version 1)
Quarter: 2021Q3

REPORT INFORMATION
  Report Type: Spontaneous
  Country: US (occurrence: US)
  Receive Date: 20210713
  Receipt Date: 20210713
  Transmission Date: 20211014
  Serious: Yes (Death)
  Sender: FDA-Public Use
  Company Number: US-ENDO PHARMACEUTICALS INC-2021-008895

PATIENT
  Age: 67 Year
  Sex: Female

DRUGS (2)
  1. RANITIDINE. [Suspect]
     Active Substance: RANITIDINE
     Indication: EROSIVE OESOPHAGITIS
     Dosage: 150 MG, UNKNOWN
     Route: 065
     Dates: start: 199301, end: 200101
  2. RANITIDINE HYDROCHLORIDE. [Suspect]
     Active Substance: RANITIDINE HYDROCHLORIDE
     Indication: EROSIVE OESOPHAGITIS
     Dosage: 150 MG, UNKNOWN
     Route: 065
     Dates: start: 199301, end: 200101

REACTIONS (5)
  - Metastases to bone [Fatal]
  - Metastases to neck [Fatal]
  - Renal cancer stage IV [Fatal]
  - Metastases to thyroid [Fatal]
  - Colon cancer metastatic [Fatal]

NARRATIVE: CASE EVENT DATE: 20020101
